FAERS Safety Report 13966804 (Version 1)
Quarter: 2017Q3

REPORT INFORMATION
  Report Type: Spontaneous
  Country: US (occurrence: US)
  Receive Date: 20170913
  Receipt Date: 20170913
  Transmission Date: 20171128
  Serious: Yes (Disabling, Other)
  Sender: FDA-Public Use
  Company Number: None

PATIENT
  Age: 70 Year
  Sex: Female
  Weight: 91.8 kg

DRUGS (11)
  1. FLUOXETINE [Concomitant]
     Active Substance: FLUOXETINE HYDROCHLORIDE
  2. MAGNESIUM [Concomitant]
     Active Substance: MAGNESIUM
  3. COQ10 [Concomitant]
     Active Substance: UBIDECARENONE
  4. HYDROCODONE [Concomitant]
     Active Substance: HYDROCODONE
  5. MULTI-B VITAMIN [Concomitant]
  6. HYDROCODO-ACEAMINEPHN 10-325 [Suspect]
     Active Substance: ACETAMINOPHEN\HYDROCODONE BITARTRATE
     Indication: PRODUCT USED FOR UNKNOWN INDICATION
     Dosage: ?          QUANTITY:50 TABLET(S);?
     Route: 048
     Dates: start: 20170902, end: 20170912
  7. VITAMIN D3 [Concomitant]
     Active Substance: CHOLECALCIFEROL
  8. ASPIRIN. [Concomitant]
     Active Substance: ASPIRIN
  9. OMEPRAZOLE. [Concomitant]
     Active Substance: OMEPRAZOLE
  10. SYNTHROID [Concomitant]
     Active Substance: LEVOTHYROXINE SODIUM
  11. DULERA [Concomitant]
     Active Substance: FORMOTEROL FUMARATE DIHYDRATE\MOMETASONE FUROATE

REACTIONS (16)
  - Withdrawal syndrome [None]
  - Product colour issue [None]
  - Product size issue [None]
  - Product shape issue [None]
  - Anxiety [None]
  - Asthenia [None]
  - Serum ferritin decreased [None]
  - Fatigue [None]
  - Headache [None]
  - Nausea [None]
  - Hyperhidrosis [None]
  - Head discomfort [None]
  - Product substitution issue [None]
  - Dizziness [None]
  - Diarrhoea [None]
  - Depression [None]

NARRATIVE: CASE EVENT DATE: 20170913
